FAERS Safety Report 4351249-8 (Version None)
Quarter: 2004Q2

REPORT INFORMATION
  Report Type: 
  Country: None (occurrence: None)
  Receive Date: 20040428
  Receipt Date: 20040406
  Transmission Date: 20050107
  Serious: Yes (Hospitalization, Other)
  Sender: FDA-Public Use
  Company Number: US_0402101097

PATIENT
  Age: 13 Year
  Sex: Male
  Weight: 68 kg

DRUGS (5)
  1. HUMATROPE [Suspect]
     Indication: SMALL FOR DATES BABY
     Dosage: 5 MG
  2. SYNTHROID [Concomitant]
  3. LUPRON [Concomitant]
  4. CORTEF [Concomitant]
  5. PREDNISONE [Concomitant]

REACTIONS (2)
  - GAIT DISTURBANCE [None]
  - SLIPPED FEMORAL EPIPHYSIS [None]
